FAERS Safety Report 9462100 (Version 2)
Quarter: 2013Q3

REPORT INFORMATION
  Report Type: Spontaneous
  Country: SI (occurrence: SI)
  Receive Date: 20130816
  Receipt Date: 20130923
  Transmission Date: 20140515
  Serious: Yes (Life-Threatening, Hospitalization, Other)
  Sender: FDA-Public Use
  Company Number: SI-ELI_LILLY_AND_COMPANY-SI201308003463

PATIENT
  Sex: Male

DRUGS (4)
  1. ZYPADHERA [Suspect]
     Dosage: 300 MG, 2/W
     Route: 030
  2. HALOPERIDOL [Suspect]
     Dosage: UNK, UNKNOWN
     Route: 065
  3. AMISULPRID [Suspect]
     Dosage: UNK, UNKNOWN
     Route: 065
  4. RISPERIDON [Suspect]
     Dosage: UNK, UNKNOWN
     Route: 065

REACTIONS (3)
  - Antiphospholipid syndrome [Unknown]
  - Suicide attempt [Recovered/Resolved]
  - Intentional overdose [Recovered/Resolved]
